FAERS Safety Report 16467471 (Version 3)
Quarter: 2020Q1

REPORT INFORMATION
  Report Type: Report from Study
  Country: PT (occurrence: PT)
  Receive Date: 20190624
  Receipt Date: 20200306
  Transmission Date: 20200409
  Serious: Yes (Hospitalization)
  Sender: FDA-Public Use
  Company Number: PT-ROCHE-2138381

PATIENT
  Age: 45 Year
  Sex: Female
  Weight: 55 kg

DRUGS (19)
  1. TAXOTERE [Suspect]
     Active Substance: DOCETAXEL
     Indication: HER-2 POSITIVE BREAST CANCER
     Dosage: MOST RECENT DOSE WAS ON 28/MAR/2017
     Route: 042
     Dates: start: 20161107
  2. NISTATIN [Concomitant]
     Active Substance: NYSTATIN
     Dosage: ONGOING = CHECKED
     Route: 065
     Dates: start: 20161107
  3. ALPRAZOLAM. [Concomitant]
     Active Substance: ALPRAZOLAM
     Dosage: ONGOING = NOT CHECKED
     Route: 065
     Dates: start: 20170720, end: 20170727
  4. CLONIXIN [Concomitant]
     Active Substance: CLONIXIN
     Dosage: ONGOING = CHECKED
     Route: 065
     Dates: start: 20161107
  5. DOLUTEGRAVIR [Concomitant]
     Active Substance: DOLUTEGRAVIR
     Dosage: ONGOING = CHECKED
     Route: 065
     Dates: start: 20180518
  6. TRIPTORELIN [Concomitant]
     Active Substance: TRIPTORELIN
     Dosage: ONGOING = CHECKED
     Route: 065
     Dates: start: 20180312
  7. NOLVADEX [Suspect]
     Active Substance: TAMOXIFEN CITRATE
     Indication: HER-2 POSITIVE BREAST CANCER
     Route: 048
     Dates: start: 20170417
  8. ISONIAZID. [Concomitant]
     Active Substance: ISONIAZID
     Route: 065
     Dates: start: 20180401
  9. PREGABALIN. [Concomitant]
     Active Substance: PREGABALIN
     Route: 065
     Dates: start: 20180601
  10. ABACAVIR. [Concomitant]
     Active Substance: ABACAVIR
     Dosage: ONGOING = CHECKED
     Route: 065
     Dates: start: 20180518
  11. AMITRIPTYLINE [Concomitant]
     Active Substance: AMITRIPTYLINE
     Route: 065
     Dates: start: 20180514
  12. ESOMEPRAZOLE. [Concomitant]
     Active Substance: ESOMEPRAZOLE MAGNESIUM
     Dosage: ONGOING = CHECKED
     Route: 065
     Dates: start: 20161107
  13. GABAPENTIN. [Concomitant]
     Active Substance: GABAPENTIN
     Route: 065
     Dates: start: 20180514, end: 20180531
  14. METOCLOPRAMIDE. [Concomitant]
     Active Substance: METOCLOPRAMIDE
     Dosage: ONGOING = CHECKED
     Route: 065
     Dates: start: 20161107
  15. TRASTUZUMAB. [Suspect]
     Active Substance: TRASTUZUMAB
     Indication: HER-2 POSITIVE BREAST CANCER
     Dosage: MOST RECENT DOSE WAS ON 12/MAR/2018
     Route: 058
     Dates: start: 20161107
  16. PERTUZUMAB. [Suspect]
     Active Substance: PERTUZUMAB
     Indication: HER-2 POSITIVE BREAST CANCER
     Dosage: MOST RECENT DOSE PRIOR TO THE EVENT: 28/NOV/2016
     Route: 042
     Dates: start: 20161107
  17. ACYCLOVIR [ACICLOVIR] [Concomitant]
     Active Substance: ACYCLOVIR
     Route: 065
     Dates: start: 20180503
  18. GABAPENTIN. [Concomitant]
     Active Substance: GABAPENTIN
     Dosage: ONGOING = CHECKED
     Route: 065
     Dates: start: 20180601
  19. TENOFOVIR [Concomitant]
     Active Substance: TENOFOVIR
     Dosage: ONGOING = CHECKED
     Route: 065
     Dates: start: 20180518

REACTIONS (1)
  - Central nervous system lesion [Recovered/Resolved]

NARRATIVE: CASE EVENT DATE: 20180419
